FAERS Safety Report 19914161 (Version 2)
Quarter: 2021Q4

REPORT INFORMATION
  Report Type: Spontaneous
  Country: KR (occurrence: KR)
  Receive Date: 20211004
  Receipt Date: 20211109
  Transmission Date: 20220303
  Serious: Yes (Other)
  Sender: FDA-Public Use
  Company Number: KR-JNJFOC-20210948348

PATIENT
  Age: 4 Decade
  Sex: Male

DRUGS (8)
  1. SPRAVATO [Suspect]
     Active Substance: ESKETAMINE
     Indication: Depression
     Dates: start: 20210726, end: 20210820
  2. SPRAVATO [Suspect]
     Active Substance: ESKETAMINE
     Dates: start: 20210823
  3. MIRTAZAPINE [Concomitant]
     Active Substance: MIRTAZAPINE
  4. DESVENLAFAXINE [Concomitant]
     Active Substance: DESVENLAFAXINE
  5. BUPROPION [Concomitant]
     Active Substance: BUPROPION
  6. ABILIFY [Concomitant]
     Active Substance: ARIPIPRAZOLE
  7. CLONAZEPAM [Concomitant]
     Active Substance: CLONAZEPAM
  8. DOXEPIN [Concomitant]
     Active Substance: DOXEPIN

REACTIONS (6)
  - Suicidal ideation [Recovered/Resolved]
  - Vitreous floaters [Recovered/Resolved]
  - Headache [Not Recovered/Not Resolved]
  - Nausea [Recovered/Resolved]
  - Drug ineffective [Recovered/Resolved]
  - Dissociation [Recovered/Resolved]
